FAERS Safety Report 20650045 (Version 1)
Quarter: 2022Q1

REPORT INFORMATION
  Report Type: Spontaneous
  Country: GB (occurrence: None)
  Receive Date: 20220329
  Receipt Date: 20220329
  Transmission Date: 20220423
  Serious: Yes (Death, Hospitalization, Other)
  Sender: FDA-Public Use
  Company Number: 2022A127677

PATIENT
  Age: 62 Year
  Sex: Male

DRUGS (3)
  1. GEFITINIB [Suspect]
     Active Substance: GEFITINIB
     Route: 048
  2. OSIMERTINIB [Suspect]
     Active Substance: OSIMERTINIB
     Route: 048
  3. AFATINIB [Concomitant]
     Active Substance: AFATINIB
     Indication: Bone disorder

REACTIONS (5)
  - Metastases to liver [Fatal]
  - Metastases to meninges [Fatal]
  - Fall [Unknown]
  - Blood sodium decreased [Unknown]
  - Skin toxicity [Unknown]

NARRATIVE: CASE EVENT DATE: 20080101
